FAERS Safety Report 10862165 (Version 1)
Quarter: 2015Q1

REPORT INFORMATION
  Report Type: Spontaneous
  Country: US (occurrence: US)
  Receive Date: 20150224
  Receipt Date: 20150224
  Transmission Date: 20150721
  Serious: No
  Sender: FDA-Public Use
  Company Number: US-HORIZON-PRE-0153-2014

PATIENT
  Age: 62 Year
  Sex: Female
  Weight: 81 kg

DRUGS (5)
  1. CHONDROITIN [Concomitant]
     Active Substance: CHONDROITIN
  2. CALCIUM [Concomitant]
     Active Substance: CALCIUM
  3. PREDNISONE. [Suspect]
     Active Substance: PREDNISONE
     Indication: HYPERSENSITIVITY
     Dates: start: 20140922
  4. MULTIVITAMIN [Concomitant]
     Active Substance: VITAMINS
  5. GLUCOSAMINE [Concomitant]
     Active Substance: GLUCOSAMINE

REACTIONS (1)
  - Drug ineffective [Unknown]
